FAERS Safety Report 21053927 (Version 2)
Quarter: 2022Q3

REPORT INFORMATION
  Report Type: Report from Study
  Country: US (occurrence: None)
  Receive Date: 20220707
  Receipt Date: 20220810
  Transmission Date: 20221027
  Serious: Yes (Death, Hospitalization)
  Sender: FDA-Public Use
  Company Number: US-ROCHE-3090460

PATIENT
  Age: 77 Year
  Sex: Female
  Weight: 77.1 kg

DRUGS (47)
  1. DORNASE ALFA [Suspect]
     Active Substance: DORNASE ALFA
     Indication: COVID-19
     Dates: start: 20210301, end: 20210315
  2. REMDESIVIR [Suspect]
     Active Substance: REMDESIVIR
     Indication: COVID-19
     Route: 042
     Dates: start: 20210228, end: 20210304
  3. METHYLPREDNISOLONE [Concomitant]
     Active Substance: METHYLPREDNISOLONE
     Indication: COVID-19
     Route: 042
     Dates: start: 20210302, end: 20210317
  4. ACETAMINOPHEN [Concomitant]
     Active Substance: ACETAMINOPHEN
     Indication: Pain
  5. ACETAMINOPHEN [Concomitant]
     Active Substance: ACETAMINOPHEN
     Indication: Pyrexia
  6. ACETAMINOPHEN [Concomitant]
     Active Substance: ACETAMINOPHEN
     Indication: Headache
  7. ACETAMINOPHEN [Concomitant]
     Active Substance: ACETAMINOPHEN
     Indication: Pyrexia
  8. ACETYLCYSTEINE [Concomitant]
     Active Substance: ACETYLCYSTEINE
  9. ARFORMOTEROL [Concomitant]
     Active Substance: ARFORMOTEROL
  10. VITAMIN C [Concomitant]
     Active Substance: ASCORBIC ACID
  11. ASPIRIN [Concomitant]
     Active Substance: ASPIRIN
  12. AZITHROMYCIN [Concomitant]
     Active Substance: AZITHROMYCIN
     Indication: Infection
     Route: 048
  13. BUDESONIDE [Concomitant]
     Active Substance: BUDESONIDE
  14. CEFTRIAXONE [Concomitant]
     Active Substance: CEFTRIAXONE
     Dosage: 200 ML/H
     Route: 042
  15. CHOLECALCIFEROL [Concomitant]
     Active Substance: CHOLECALCIFEROL
     Dosage: 1000 U
  16. DEXAMETHASONE [Concomitant]
     Active Substance: DEXAMETHASONE
     Route: 042
  17. DILTIAZEM [Concomitant]
     Active Substance: DILTIAZEM
     Route: 048
  18. DOCUSATE [Concomitant]
     Active Substance: DOCUSATE
  19. ENOXAPARIN [Concomitant]
     Active Substance: ENOXAPARIN
     Route: 058
  20. EPHEDRINE [Concomitant]
     Active Substance: EPHEDRINE
     Route: 042
  21. EPINEPHRINE [Concomitant]
     Active Substance: EPINEPHRINE
     Route: 041
  22. ETOMIDATE [Concomitant]
     Active Substance: ETOMIDATE
     Route: 042
  23. FAMOTIDINE [Concomitant]
     Active Substance: FAMOTIDINE
     Route: 042
  24. FENTANYL [Concomitant]
     Active Substance: FENTANYL
     Dosage: CONTINUOUS DRIP AT 1 ML/H IV
     Route: 041
  25. FLUCONAZOLE [Concomitant]
     Active Substance: FLUCONAZOLE
  26. CODEINE PHOSPHATE\GUAIFENESIN [Concomitant]
     Active Substance: CODEINE PHOSPHATE\GUAIFENESIN
     Indication: Cough
  27. HYDRALAZINE [Concomitant]
     Active Substance: HYDRALAZINE HYDROCHLORIDE
  28. HYDROCODONE [Concomitant]
     Active Substance: HYDROCODONE
     Dosage: 1-2 TABLETS AS NEEDED.
  29. IPRATROPIUM [Concomitant]
     Active Substance: IPRATROPIUM
  30. LEVOTHYROXINE [Concomitant]
     Active Substance: LEVOTHYROXINE
  31. LIDOCAINE [Concomitant]
     Active Substance: LIDOCAINE
     Dosage: 1 PATCH
     Route: 062
  32. MAGNESIUM HYDROXIDE [Concomitant]
     Active Substance: MAGNESIUM HYDROXIDE
     Indication: Constipation
  33. MELATONIN [Concomitant]
     Active Substance: MELATONIN
  34. METHYLPREDNISOLONE [Concomitant]
     Active Substance: METHYLPREDNISOLONE
     Route: 042
  35. MIDAZOLAM [Concomitant]
     Active Substance: MIDAZOLAM
     Indication: Agitation
  36. MORPHINE [Concomitant]
     Active Substance: MORPHINE
     Indication: Pain
     Dosage: 1-2 MG
     Route: 042
  37. NOREPINEPHRINE [Concomitant]
     Active Substance: NOREPINEPHRINE
     Dosage: CONTINUOUS DRIP AT 4.69 ML/H IV
     Route: 041
  38. SODIUM CHLORIDE [Concomitant]
     Active Substance: SODIUM CHLORIDE
     Dosage: CONTINUOUS DRIP AT 75 ML/H IV
     Route: 041
  39. NYSTATIN [Concomitant]
     Active Substance: NYSTATIN
     Route: 048
  40. PANTOPRAZOLE [Concomitant]
     Active Substance: PANTOPRAZOLE
     Route: 042
  41. PHENYLEPHRINE [Concomitant]
     Active Substance: PHENYLEPHRINE HYDROCHLORIDE
     Route: 042
  42. KCL [Concomitant]
     Active Substance: POTASSIUM CHLORIDE
     Indication: Hypokalaemia
     Route: 048
  43. ROCURONIUM [Concomitant]
     Active Substance: ROCURONIUM BROMIDE
     Route: 042
  44. SENNOSIDES [Concomitant]
     Active Substance: SENNOSIDES
  45. SIMVASTATIN [Concomitant]
     Active Substance: SIMVASTATIN
  46. TIOTROPIUM [Concomitant]
     Active Substance: TIOTROPIUM
     Dosage: 2 PUFFS
     Route: 055
  47. TRAMADOL [Concomitant]
     Active Substance: TRAMADOL
     Indication: Pain

REACTIONS (2)
  - Respiratory failure [Fatal]
  - Off label use [Unknown]

NARRATIVE: CASE EVENT DATE: 20210317
